FAERS Safety Report 18436217 (Version 1)
Quarter: 2020Q4

REPORT INFORMATION
  Report Type: Spontaneous
  Country: US (occurrence: US)
  Receive Date: 20201028
  Receipt Date: 20201028
  Transmission Date: 20210114
  Serious: No
  Sender: FDA-Public Use
  Company Number: US-BEH-2020123709

PATIENT
  Age: 49 Year
  Sex: Female

DRUGS (10)
  1. HIZENTRA [Suspect]
     Active Substance: HUMAN IMMUNOGLOBULIN G
     Dosage: 4 GRAM (20 ML SDV), QW
     Route: 058
     Dates: start: 20200428
  2. PROGESTERONE. [Concomitant]
     Active Substance: PROGESTERONE
     Dosage: 100 MILLIGRAM
     Route: 065
  3. MINIVELLE [Concomitant]
     Active Substance: ESTRADIOL
     Dosage: 0.037 MILLIGRAM
     Route: 065
  4. MULTIVITAMINS [VITAMINS NOS] [Concomitant]
     Active Substance: VITAMINS
  5. HIZENTRA [Suspect]
     Active Substance: HUMAN IMMUNOGLOBULIN G
     Indication: IMMUNODEFICIENCY COMMON VARIABLE
     Dosage: 2 GRAM (10 ML SDV), QW
     Route: 058
     Dates: start: 20200428
  6. HIZENTRA [Suspect]
     Active Substance: HUMAN IMMUNOGLOBULIN G
     Indication: IMMUNOGLOBULIN THERAPY
     Dosage: 1 GRAM (5 ML SDV), QW
     Route: 058
     Dates: start: 20200428
  7. BUDESONIDE. [Concomitant]
     Active Substance: BUDESONIDE
  8. FLAXSEED OIL [LINUM USITATISSIMUM SEED OIL] [Concomitant]
     Active Substance: HERBALS\LINSEED OIL
     Dosage: 1000 MILLIGRAM
  9. CALCIUM [Concomitant]
     Active Substance: CALCIUM
  10. HIZENTRA [Suspect]
     Active Substance: HUMAN IMMUNOGLOBULIN G
     Dosage: 7 GRAM (35 ML), QW
     Route: 058
     Dates: start: 20180918

REACTIONS (2)
  - Infusion site pruritus [Not Recovered/Not Resolved]
  - Infusion site pruritus [Not Recovered/Not Resolved]

NARRATIVE: CASE EVENT DATE: 20200913
